FAERS Safety Report 8297056-5 (Version None)
Quarter: 2012Q2

REPORT INFORMATION
  Report Type: 
  Country: None (occurrence: None)
  Receive Date: 20120416
  Receipt Date: 20120402
  Transmission Date: 20120825
  Serious: Yes (Death, Hospitalization)
  Sender: FDA-Public Use
  Company Number: BVT-000276

PATIENT
  Age: 68 Year
  Sex: Female

DRUGS (3)
  1. ANAKINRA (ANAKINRA) [Suspect]
     Indication: RHEUMATOID ARTHRITIS
     Dosage: - (100 MG, 1 IN 1 D), (100 MG)
     Dates: start: 20050401
  2. ANAKINRA (ANAKINRA) [Suspect]
     Indication: RHEUMATOID ARTHRITIS
     Dosage: - (100 MG, 1 IN 1 D), (100 MG)
     Dates: start: 20031101, end: 20050201
  3. METHOTREXATE [Concomitant]

REACTIONS (6)
  - PUPILS UNEQUAL [None]
  - DIZZINESS [None]
  - LOSS OF CONSCIOUSNESS [None]
  - NAUSEA [None]
  - CARDIO-RESPIRATORY ARREST [None]
  - HEADACHE [None]
